FAERS Safety Report 8929301 (Version 1)
Quarter: 2012Q4

REPORT INFORMATION
  Report Type: Spontaneous
  Country: US (occurrence: None)
  Receive Date: 20121126
  Receipt Date: 20121126
  Transmission Date: 20130627
  Serious: Yes (Other)
  Sender: FDA-Public Use
  Company Number: None

PATIENT
  Age: 88 Year
  Sex: Female
  Weight: 61.24 kg

DRUGS (1)
  1. AZELASTINE [Suspect]
     Indication: TONSILLITIS
     Dates: start: 20120907

REACTIONS (12)
  - Myalgia [None]
  - Vertigo [None]
  - Cough [None]
  - Throat irritation [None]
  - Dry throat [None]
  - Nasal congestion [None]
  - Upper-airway cough syndrome [None]
  - Nasal dryness [None]
  - Eye pain [None]
  - Dry eye [None]
  - Dyspnoea [None]
  - Dizziness [None]
